FAERS Safety Report 11635343 (Version 1)
Quarter: 2015Q4

REPORT INFORMATION
  Report Type: Report from Study
  Country: AU (occurrence: AU)
  Receive Date: 20151016
  Receipt Date: 20151016
  Transmission Date: 20160304
  Serious: Yes (Other)
  Sender: FDA-Public Use
  Company Number: AU-ROCHE-1646107

PATIENT
  Age: 50 Year
  Sex: Female

DRUGS (1)
  1. ACTEMRA [Suspect]
     Active Substance: TOCILIZUMAB
     Indication: RHEUMATOID ARTHRITIS
     Dosage: ONGOING
     Route: 042
     Dates: start: 20150325

REACTIONS (3)
  - Cyst [Unknown]
  - Impaired healing [Recovering/Resolving]
  - Wound infection [Unknown]

NARRATIVE: CASE EVENT DATE: 20151002
